FAERS Safety Report 10020880 (Version 1)
Quarter: 2014Q1

REPORT INFORMATION
  Report Type: Spontaneous
  Country: US (occurrence: None)
  Receive Date: 20140318
  Receipt Date: 20140318
  Transmission Date: 20141002
  Serious: Yes (Hospitalization)
  Sender: FDA-Public Use
  Company Number: None

PATIENT
  Age: 76 Year
  Sex: Male
  Weight: 115.45 kg

DRUGS (15)
  1. XARELTO 20 MG JANSSEN [Suspect]
     Indication: ATRIAL FIBRILLATION
     Dosage: Q24H
     Route: 048
     Dates: start: 20140206, end: 20140225
  2. ALLOPURINOL [Concomitant]
  3. ATORVASTATIN [Concomitant]
  4. CARVEDILOL [Concomitant]
  5. CLINDAMYCIN [Concomitant]
  6. FUROSEMIDE [Concomitant]
  7. LEVETIRACETAM [Concomitant]
  8. LINEZOLID [Concomitant]
  9. LISINOPRIL [Concomitant]
  10. METFORMIN [Concomitant]
  11. OMEGA-3 FATTY ACIDS [Concomitant]
  12. SERTRALINE [Concomitant]
  13. SITAGLIPTIN [Concomitant]
  14. SPIRONOLACTONE [Concomitant]
  15. VITAMIN C [Concomitant]

REACTIONS (3)
  - Syncope [None]
  - Cerebral haematoma [None]
  - Subarachnoid haemorrhage [None]
